FAERS Safety Report 17979670 (Version 3)
Quarter: 2020Q3

REPORT INFORMATION
  Report Type: Report from Study
  Country: IL (occurrence: IL)
  Receive Date: 20200703
  Receipt Date: 20200810
  Transmission Date: 20201103
  Serious: Yes (Other)
  Sender: FDA-Public Use
  Company Number: IL-JNJFOC-20200636171

PATIENT

DRUGS (5)
  1. STELARA [Suspect]
     Active Substance: USTEKINUMAB
     Route: 058
  2. STELARA [Suspect]
     Active Substance: USTEKINUMAB
     Route: 058
  3. STELARA [Suspect]
     Active Substance: USTEKINUMAB
     Route: 058
  4. STELARA [Suspect]
     Active Substance: USTEKINUMAB
     Route: 058
  5. STELARA [Suspect]
     Active Substance: USTEKINUMAB
     Indication: CROHN^S DISEASE
     Route: 042

REACTIONS (11)
  - Cytomegalovirus colitis [Unknown]
  - Skin cancer [Unknown]
  - Disturbance in attention [Unknown]
  - Clostridium difficile infection [Unknown]
  - Benign breast neoplasm [Unknown]
  - Off label use [Unknown]
  - Product use issue [Unknown]
  - Rash [Unknown]
  - Cervical dysplasia [Unknown]
  - Gastroenteritis [Unknown]
  - Upper respiratory tract infection [Unknown]
